FAERS Safety Report 4707327-4 (Version None)
Quarter: 2005Q3

REPORT INFORMATION
  Report Type: 
  Country: None (occurrence: None)
  Receive Date: 20050706
  Receipt Date: 20050630
  Transmission Date: 20060218
  Serious: Yes (Other)
  Sender: FDA-Public Use
  Company Number: US-BRISTOL-MYERS SQUIBB COMPANY-13021514

PATIENT

DRUGS (4)
  1. CYCLOPHOSPHAMIDE [Suspect]
     Indication: BREAST CANCER
  2. DOXORUBICIN HCL [Suspect]
     Indication: BREAST CANCER
  3. VINCRISTINE [Suspect]
     Indication: BREAST CANCER
  4. TAMOXIFEN [Concomitant]
     Indication: BREAST CANCER

REACTIONS (1)
  - SCLERODERMA [None]
